FAERS Safety Report 12747972 (Version 3)
Quarter: 2018Q1

REPORT INFORMATION
  Report Type: Spontaneous
  Country: US (occurrence: US)
  Receive Date: 20160915
  Receipt Date: 20180223
  Transmission Date: 20180508
  Serious: Yes (Death)
  Sender: FDA-Public Use
  Company Number: US-ASTELLAS-2016US032963

PATIENT
  Age: 76 Year
  Sex: Male

DRUGS (1)
  1. XTANDI [Suspect]
     Active Substance: ENZALUTAMIDE
     Indication: PROSTATE CANCER
     Route: 048
     Dates: start: 20160713

REACTIONS (3)
  - Dysgeusia [Recovered/Resolved]
  - Death [Fatal]
  - Product quality issue [Unknown]

NARRATIVE: CASE EVENT DATE: 201612
